FAERS Safety Report 18643743 (Version 1)
Quarter: 2020Q4

REPORT INFORMATION
  Report Type: Report from Study
  Country: US (occurrence: US)
  Receive Date: 20201221
  Receipt Date: 20201221
  Transmission Date: 20210114
  Serious: Yes (Other)
  Sender: FDA-Public Use
  Company Number: US-TEVA-2020-US-1860369

PATIENT
  Sex: Female

DRUGS (2)
  1. FLUCONAZOLE. [Interacting]
     Active Substance: FLUCONAZOLE
     Indication: PRODUCT USED FOR UNKNOWN INDICATION
     Route: 065
  2. WARFARIN [Suspect]
     Active Substance: WARFARIN
     Indication: ANTICOAGULANT THERAPY
     Route: 065

REACTIONS (2)
  - Drug interaction [Unknown]
  - Anticoagulation drug level above therapeutic [Unknown]
